FAERS Safety Report 4568133-7 (Version None)
Quarter: 2005Q1

REPORT INFORMATION
  Report Type: 
  Country: None (occurrence: None)
  Receive Date: 20050202
  Receipt Date: 20050125
  Transmission Date: 20050727
  Serious: Yes (Other)
  Sender: FDA-Public Use
  Company Number: JP-ROCHE-394001

PATIENT
  Age: 11 Year
  Sex: Female

DRUGS (1)
  1. TAMIFLU [Suspect]
     Route: 048
     Dates: start: 20050119, end: 20050123

REACTIONS (4)
  - DIARRHOEA [None]
  - NEUTROPENIA [None]
  - VOMITING [None]
  - WHITE BLOOD CELL COUNT DECREASED [None]
